FAERS Safety Report 8417585-0 (Version None)
Quarter: 2012Q2

REPORT INFORMATION
  Report Type: 
  Country: None (occurrence: None)
  Receive Date: 20120606
  Receipt Date: 20120530
  Transmission Date: 20120825
  Serious: Yes (Other)
  Sender: FDA-Public Use
  Company Number: CHPA2012NO011509

PATIENT
  Age: 39 Year
  Sex: Female

DRUGS (1)
  1. OTRIVIN [Suspect]

REACTIONS (3)
  - THERAPEUTIC RESPONSE DECREASED [None]
  - INCORRECT DRUG ADMINISTRATION DURATION [None]
  - DRUG DEPENDENCE [None]
